FAERS Safety Report 16110847 (Version 1)
Quarter: 2019Q1

REPORT INFORMATION
  Report Type: Spontaneous
  Country: CZ (occurrence: CZ)
  Receive Date: 20190325
  Receipt Date: 20190325
  Transmission Date: 20190418
  Serious: Yes (Death, Life-Threatening, Hospitalization, Disabling, Other)
  Sender: FDA-Public Use
  Company Number: CZ-ACCORD-115094

PATIENT
  Age: 58 Year
  Sex: Male

DRUGS (3)
  1. FLUOROURACIL. [Suspect]
     Active Substance: FLUOROURACIL
     Indication: NASAL SINUS CANCER
     Dosage: FIRST CYCLE OF INDUCTION THERAPY DFC 3W.
     Route: 042
     Dates: start: 20181016
  2. CISPLATIN. [Suspect]
     Active Substance: CISPLATIN
     Indication: NASAL SINUS CANCER
     Dosage: IT WAS THE 1ST CYCLE OF INDUCTION CHEMOTHERAPY WITH DCF 3W.
     Route: 042
     Dates: start: 20181016
  3. DOCETAXEL. [Suspect]
     Active Substance: DOCETAXEL
     Indication: NASAL SINUS CANCER
     Dosage: IT WAS THE 1ST CYCLE FIRST CYCLE OF INDUCTION THERAPY DFC 3W.
     Route: 042
     Dates: start: 20181016

REACTIONS (4)
  - Immunosuppression [Fatal]
  - Off label use [Unknown]
  - Pneumonia [Fatal]
  - Febrile neutropenia [Fatal]

NARRATIVE: CASE EVENT DATE: 20181028
